FAERS Safety Report 9357088 (Version 2)
Quarter: 2013Q3

REPORT INFORMATION
  Report Type: Spontaneous
  Country: US (occurrence: US)
  Receive Date: 20130620
  Receipt Date: 20130703
  Transmission Date: 20140515
  Serious: Yes (Hospitalization)
  Sender: FDA-Public Use
  Company Number: US-BIOGENIDEC-2013BI053330

PATIENT
  Age: 54 Year
  Sex: Female

DRUGS (11)
  1. AVONEX [Suspect]
     Indication: MULTIPLE SCLEROSIS
     Route: 030
     Dates: start: 20120302
  2. AVONEX [Suspect]
     Indication: MULTIPLE SCLEROSIS
     Route: 030
  3. AVONEX [Suspect]
     Indication: MULTIPLE SCLEROSIS
     Route: 030
     Dates: end: 20120402
  4. AVONEX [Suspect]
     Indication: MULTIPLE SCLEROSIS
     Route: 030
  5. AVONEX [Suspect]
     Indication: MULTIPLE SCLEROSIS
     Route: 030
     Dates: start: 20120406, end: 20130617
  6. ASTELIN [Concomitant]
  7. FLONASE [Concomitant]
  8. LEXAPRO [Concomitant]
  9. MIRAPEX [Concomitant]
  10. ZYRTEC [Concomitant]
  11. SOLU MEDROL [Concomitant]
     Indication: PRODUCT USED FOR UNKNOWN INDICATION
     Route: 042
     Dates: end: 20130612

REACTIONS (15)
  - Nephrolithiasis [Recovered/Resolved]
  - Dehydration [Recovered/Resolved]
  - Convulsion [Recovered/Resolved]
  - Depression suicidal [Recovered/Resolved]
  - Migraine [Recovered/Resolved]
  - Fall [Recovered/Resolved]
  - Memory impairment [Unknown]
  - Hypertension [Recovered/Resolved]
  - Drug withdrawal syndrome [Unknown]
  - Cognitive disorder [Unknown]
  - Hallucination [Unknown]
  - Crying [Recovered/Resolved]
  - Vomiting [Unknown]
  - Paraesthesia [Unknown]
  - Depression [Not Recovered/Not Resolved]
